FAERS Safety Report 5033468-0 (Version None)
Quarter: 2006Q2

REPORT INFORMATION
  Report Type: 
  Country: None (occurrence: None)
  Receive Date: 20060621
  Receipt Date: 20060612
  Transmission Date: 20061013
  Serious: Yes (Hospitalization, Other)
  Sender: FDA-Public Use
  Company Number: USA-2006-0024263

PATIENT
  Age: 67 Year
  Sex: Male
  Weight: 69.8 kg

DRUGS (10)
  1. OXYCODONE HCL [Suspect]
     Indication: CENTRAL PAIN SYNDROME
     Dosage: 60 MG, DAILY, ORAL
     Route: 048
     Dates: end: 20050930
  2. LOPRESSOR [Concomitant]
  3. ASPIRIN [Concomitant]
  4. TOPAMAX [Concomitant]
  5. LEXAPRO [Concomitant]
  6. ADVAIR DISKUS 100/50 [Concomitant]
  7. FLONASE [Concomitant]
  8. PREVACID [Concomitant]
  9. XANAX [Concomitant]
  10. LASIX [Concomitant]

REACTIONS (6)
  - CONVULSION [None]
  - DISORIENTATION [None]
  - DRUG INEFFECTIVE [None]
  - INCORRECT DOSE ADMINISTERED [None]
  - MALAISE [None]
  - PHARMACEUTICAL PRODUCT COMPLAINT [None]
